FAERS Safety Report 11723920 (Version 2)
Quarter: 2015Q4

REPORT INFORMATION
  Report Type: Report from Study
  Country: DE (occurrence: DE)
  Receive Date: 20151111
  Receipt Date: 20151204
  Transmission Date: 20160304
  Serious: Yes (Hospitalization)
  Sender: FDA-Public Use
  Company Number: DE-DEP_12998_2015

PATIENT
  Age: 42 Year
  Sex: Female
  Weight: 58 kg

DRUGS (6)
  1. AMITRIPTYLIN - AMITRIPTYLINE HYDROCHLORIDE [Concomitant]
     Dosage: DF
  2. VENLAFAXIN - VENLAFAXINE HYDROCHLORIDE [Concomitant]
     Dosage: DF
  3. PALEXIA [Suspect]
     Active Substance: TAPENTADOL HYDROCHLORIDE
     Indication: PRODUCT USED FOR UNKNOWN INDICATION
     Route: 048
  4. L-THYROXIN - LEVOTHYROXINE SODIUM [Concomitant]
     Dosage: DF
  5. RAMIPRIL. [Concomitant]
     Active Substance: RAMIPRIL
     Dosage: DF
  6. BISOPROLOL [Concomitant]
     Active Substance: BISOPROLOL
     Dosage: DF

REACTIONS (8)
  - Chest discomfort [Recovered/Resolved]
  - Dizziness [Recovered/Resolved]
  - Tension headache [Recovered/Resolved]
  - Thinking abnormal [Recovered/Resolved]
  - Somnolence [Recovered/Resolved]
  - Incorrect dose administered [Recovered/Resolved]
  - Drug dispensing error [Recovered/Resolved]
  - Heart rate increased [Recovered/Resolved]

NARRATIVE: CASE EVENT DATE: 201510
